FAERS Safety Report 5381315-X (Version None)
Quarter: 2007Q3

REPORT INFORMATION
  Report Type: 
  Country: None (occurrence: None)
  Receive Date: 20070709
  Receipt Date: 20070703
  Transmission Date: 20080115
  Serious: Yes (Death, Hospitalization)
  Sender: FDA-Public Use
  Company Number: US-BAYER-200713689GDS

PATIENT
  Age: 14 Year
  Sex: Male

DRUGS (1)
  1. ASPIRIN [Suspect]
     Indication: VIRAL INFECTION

REACTIONS (1)
  - REYE'S SYNDROME [None]
